FAERS Safety Report 7973005-1 (Version None)
Quarter: 2011Q4

REPORT INFORMATION
  Report Type: 
  Country: None (occurrence: None)
  Receive Date: 20111213
  Receipt Date: 20111208
  Transmission Date: 20120403
  Serious: Yes (Other)
  Sender: FDA-Public Use
  Company Number: US-PFIZER INC-2010170366

PATIENT
  Sex: Male

DRUGS (6)
  1. CHANTIX [Suspect]
     Dosage: 1 MG, UNK
     Dates: start: 20090601, end: 20090912
  2. HYDROCODONE [Concomitant]
     Indication: ANALGESIC THERAPY
     Dosage: UNK
     Dates: start: 20080901, end: 20100101
  3. CHANTIX [Suspect]
     Indication: SMOKING CESSATION THERAPY
     Dosage: 0.5 MG, UNK
     Dates: start: 20090612, end: 20090601
  4. NAPROXEN [Concomitant]
     Indication: ANALGESIC THERAPY
     Dosage: UNK
     Dates: start: 20080701, end: 20100101
  5. PANTOPRAZOLE [Concomitant]
     Indication: GASTROOESOPHAGEAL REFLUX DISEASE
     Dosage: UNK
     Dates: start: 20090501, end: 20110101
  6. TRAMADOL [Concomitant]
     Indication: ANALGESIC THERAPY
     Dosage: UNK
     Dates: start: 20080701, end: 20100101

REACTIONS (4)
  - AGGRESSION [None]
  - ABNORMAL BEHAVIOUR [None]
  - DEPRESSION [None]
  - EMOTIONAL DISTRESS [None]
